FAERS Safety Report 23149062 (Version 1)
Quarter: 2023Q4

REPORT INFORMATION
  Report Type: Spontaneous
  Country: US (occurrence: US)
  Receive Date: 20231106
  Receipt Date: 20231106
  Transmission Date: 20240110
  Serious: Yes (Hospitalization)
  Sender: FDA-Public Use
  Company Number: US-MYLANLABS-2023M1116309

PATIENT
  Age: 42 Year
  Sex: Female
  Weight: 64.2 kg

DRUGS (70)
  1. METHADONE [Suspect]
     Active Substance: METHADONE HYDROCHLORIDE
     Indication: Pain
     Dosage: 10 MILLIGRAM, DAY 1
     Route: 048
  2. METHADONE [Suspect]
     Active Substance: METHADONE HYDROCHLORIDE
     Dosage: 20 MILLIGRAM, DAY 3
     Route: 048
  3. METHADONE [Suspect]
     Active Substance: METHADONE HYDROCHLORIDE
     Dosage: 40 MILLIGRAM, DAY 4
     Route: 048
  4. METHADONE [Suspect]
     Active Substance: METHADONE HYDROCHLORIDE
     Dosage: 50 MILLIGRAM, DAY 10
     Route: 048
  5. METHADONE [Suspect]
     Active Substance: METHADONE HYDROCHLORIDE
     Dosage: 30 MILLIGRAM, DAY 12
     Route: 048
  6. METHADONE [Suspect]
     Active Substance: METHADONE HYDROCHLORIDE
     Dosage: 30 MILLIGRAM, DAY 16
     Route: 048
  7. METHADONE [Suspect]
     Active Substance: METHADONE HYDROCHLORIDE
     Dosage: 10 MILLIGRAM, POD 1
     Route: 048
  8. METHADONE [Suspect]
     Active Substance: METHADONE HYDROCHLORIDE
     Dosage: 5 MILLIGRAM, POD 2
     Route: 048
  9. METHADONE [Suspect]
     Active Substance: METHADONE HYDROCHLORIDE
     Indication: Pain
     Dosage: 20 MILLIGRAM, DAY 25
     Route: 042
  10. METHADONE [Suspect]
     Active Substance: METHADONE HYDROCHLORIDE
     Dosage: 10 MILLIGRAM, POD 1
     Route: 042
  11. GABAPENTIN [Suspect]
     Active Substance: GABAPENTIN
     Indication: Pain
     Dosage: 2400 MILLIGRAM, DAY 1
     Route: 048
  12. GABAPENTIN [Suspect]
     Active Substance: GABAPENTIN
     Dosage: 1600 MILLIGRAM, DAY 3
     Route: 048
  13. GABAPENTIN [Suspect]
     Active Substance: GABAPENTIN
     Dosage: 1800 MILLIGRAM, DAY 4
     Route: 048
  14. GABAPENTIN [Suspect]
     Active Substance: GABAPENTIN
     Dosage: 1800 MILLIGRAM, DAY 10
     Route: 048
  15. GABAPENTIN [Suspect]
     Active Substance: GABAPENTIN
     Dosage: 1200 MILLIGRAM, DAY 12
     Route: 048
  16. GABAPENTIN [Suspect]
     Active Substance: GABAPENTIN
     Dosage: 1800 MILLIGRAM, DAY 16
     Route: 048
  17. GABAPENTIN [Suspect]
     Active Substance: GABAPENTIN
     Dosage: 1800 MILLIGRAM, DAY 20
     Route: 048
  18. GABAPENTIN [Suspect]
     Active Substance: GABAPENTIN
     Dosage: 1800 MILLIGRAM, DAY 25
     Route: 048
  19. GABAPENTIN [Suspect]
     Active Substance: GABAPENTIN
     Dosage: 1200 MILLIGRAM, POD 1
     Route: 048
  20. GABAPENTIN [Suspect]
     Active Substance: GABAPENTIN
     Dosage: 1800 MILLIGRAM, POD 2
     Route: 048
  21. GABAPENTIN [Suspect]
     Active Substance: GABAPENTIN
     Dosage: 1200 MILLIGRAM, POD 3
     Route: 048
  22. BACLOFEN [Suspect]
     Active Substance: BACLOFEN
     Indication: Pain
     Dosage: 15 MILLIGRAM, DAY 1
     Route: 048
  23. BACLOFEN [Suspect]
     Active Substance: BACLOFEN
     Dosage: 10 MILLIGRAM, DAY 3
     Route: 048
  24. BACLOFEN [Suspect]
     Active Substance: BACLOFEN
     Dosage: 15 MILLIGRAM, DAY 4
     Route: 048
  25. TYLENOL [Suspect]
     Active Substance: ACETAMINOPHEN
     Indication: Pain
     Dosage: 500 MILLIGRAM, DAY 20
     Route: 048
  26. TYLENOL [Suspect]
     Active Substance: ACETAMINOPHEN
     Dosage: 500 MILLIGRAM, POD 3
     Route: 048
  27. OXYCODONE [Suspect]
     Active Substance: OXYCODONE
     Indication: Pain
     Dosage: UNK
     Route: 065
  28. MORPHINE [Suspect]
     Active Substance: MORPHINE
     Indication: Pain
     Dosage: 492 MILLIEQUIVALENT, DAY 1; TOTAL MORPHINE MILLIEQUIVALENTS
     Route: 048
  29. MORPHINE [Suspect]
     Active Substance: MORPHINE
     Dosage: 530 MILLIEQUIVALENT, DAY 3; TOTAL MORPHINE MILLIEQUIVALENTS
     Route: 048
  30. MORPHINE [Suspect]
     Active Substance: MORPHINE
     Dosage: 380 MILLIEQUIVALENT, DAY 4; TOTAL MORPHINE MILLIEQUIVALENTS
     Route: 048
  31. MORPHINE [Suspect]
     Active Substance: MORPHINE
     Dosage: 314 MILLIEQUIVALENT, DAY 10; TOTAL MORPHINE MILLIEQUIVALENTS
     Route: 048
  32. MORPHINE [Suspect]
     Active Substance: MORPHINE
     Dosage: 204 MILLIEQUIVALENT, DAY 12; TOTAL MORPHINE MILLIEQUIVALENTS
     Route: 048
  33. MORPHINE [Suspect]
     Active Substance: MORPHINE
     Dosage: 6 MILLIEQUIVALENT, DAY 16; TOTAL MORPHINE MILLIEQUIVALENTS
     Route: 048
  34. MORPHINE [Suspect]
     Active Substance: MORPHINE
     Dosage: 42 MILLIEQUIVALENT, DAY 20; TOTAL MORPHINE MILLIEQUIVALENTS
     Route: 048
  35. MORPHINE [Suspect]
     Active Substance: MORPHINE
     Dosage: 24 MILLIEQUIVALENT, DAY 25; TOTAL MORPHINE MILLIEQUIVALENTS
     Route: 048
  36. MORPHINE [Suspect]
     Active Substance: MORPHINE
     Dosage: 24 MILLIEQUIVALENT, POD 1; TOTAL MORPHINE MILLIEQUIVALENTS
     Route: 048
  37. MORPHINE [Suspect]
     Active Substance: MORPHINE
     Dosage: 3 MILLIEQUIVALENT, POD 2; TOTAL MORPHINE MILLIEQUIVALENTS
     Route: 048
  38. MORPHINE [Suspect]
     Active Substance: MORPHINE
     Dosage: 13 MILLIEQUIVALENT, POD 3; TOTAL MORPHINE MILLIEQUIVALENTS
     Route: 048
  39. MORPHINE [Suspect]
     Active Substance: MORPHINE
     Indication: Pain
     Dosage: 492 MILLIEQUIVALENT, DAY 1; TOTAL MORPHINE MILLIEQUIVALENTS
     Route: 037
  40. MORPHINE [Suspect]
     Active Substance: MORPHINE
     Dosage: 530 MILLIEQUIVALENT, DAY 3; TOTAL MORPHINE MILLIEQUIVALENTS
     Route: 037
  41. MORPHINE [Suspect]
     Active Substance: MORPHINE
     Dosage: 380 MILLIEQUIVALENT, DAY 4; TOTAL MORPHINE MILLIEQUIVALENTS
     Route: 037
  42. MORPHINE [Suspect]
     Active Substance: MORPHINE
     Dosage: 314 MILLIEQUIVALENT, DAY 10; TOTAL MORPHINE MILLIEQUIVALENTS
     Route: 037
  43. MORPHINE [Suspect]
     Active Substance: MORPHINE
     Dosage: 204 MILLIEQUIVALENT, DAY 12; TOTAL MORPHINE MILLIEQUIVALENTS
     Route: 037
  44. MORPHINE [Suspect]
     Active Substance: MORPHINE
     Dosage: 6 MILLIEQUIVALENT, DAY 16; TOTAL MORPHINE MILLIEQUIVALENTS
     Route: 037
  45. MORPHINE [Suspect]
     Active Substance: MORPHINE
     Dosage: 42 MILLIEQUIVALENT, DAY 20; TOTAL MORPHINE MILLIEQUIVALENTS
     Route: 037
  46. MORPHINE [Suspect]
     Active Substance: MORPHINE
     Dosage: 24 MILLIEQUIVALENT, DAY 25; TOTAL MORPHINE MILLIEQUIVALENTS
     Route: 037
  47. MORPHINE [Suspect]
     Active Substance: MORPHINE
     Dosage: 24 MILLIEQUIVALENT, POD 1; TOTAL MORPHINE MILLIEQUIVALENTS
     Route: 037
  48. MORPHINE [Suspect]
     Active Substance: MORPHINE
     Dosage: 3 MILLIEQUIVALENT, POD 2; TOTAL MORPHINE MILLIEQUIVALENTS
     Route: 037
  49. MORPHINE [Suspect]
     Active Substance: MORPHINE
     Dosage: 13 MILLIEQUIVALENT, POD 3; TOTAL MORPHINE MILLIEQUIVALENTS
     Route: 037
  50. HYDROMORPHONE [Suspect]
     Active Substance: HYDROMORPHONE
     Indication: Pain
     Dosage: UNK
     Route: 037
  51. BUPIVACAINE [Suspect]
     Active Substance: BUPIVACAINE
     Indication: Pain
     Dosage: 4 MILLIGRAM, DAY 1
     Route: 037
  52. BUPIVACAINE [Suspect]
     Active Substance: BUPIVACAINE
     Dosage: 4 MILLIGRAM, DAY 3
     Route: 037
  53. BUPIVACAINE [Suspect]
     Active Substance: BUPIVACAINE
     Dosage: 4 MILLIGRAM, DAY 4
     Route: 037
  54. BUPIVACAINE [Suspect]
     Active Substance: BUPIVACAINE
     Dosage: 4 MILLIGRAM, DAY 10
     Route: 037
  55. BUPIVACAINE [Suspect]
     Active Substance: BUPIVACAINE
     Dosage: 4 MILLIGRAM, DAY 12
     Route: 037
  56. BUPIVACAINE [Suspect]
     Active Substance: BUPIVACAINE
     Dosage: 4 MILLIGRAM, DAY 16
     Route: 037
  57. BUPIVACAINE [Suspect]
     Active Substance: BUPIVACAINE
     Dosage: 4 MILLIGRAM, DAY 20
     Route: 037
  58. BUPIVACAINE [Suspect]
     Active Substance: BUPIVACAINE
     Dosage: 4 MILLIGRAM, DAY 25
     Route: 037
  59. BUPIVACAINE [Suspect]
     Active Substance: BUPIVACAINE
     Dosage: 2 MILLIGRAM, POD 1
     Route: 037
  60. BUPIVACAINE [Suspect]
     Active Substance: BUPIVACAINE
     Dosage: 1 MILLIGRAM, POD 2
     Route: 037
  61. BUPIVACAINE [Suspect]
     Active Substance: BUPIVACAINE
     Dosage: 1 MILLIGRAM, POD 3
     Route: 037
  62. SERTRALINE [Concomitant]
     Active Substance: SERTRALINE HYDROCHLORIDE
     Indication: Depression
     Dosage: UNK
     Route: 065
  63. DOXORUBICIN [Concomitant]
     Active Substance: DOXORUBICIN
     Indication: Anticoagulant therapy
     Dosage: UNK
     Route: 065
  64. OLANZAPINE [Concomitant]
     Active Substance: OLANZAPINE
     Indication: Depression
     Dosage: UNK
     Route: 065
  65. KETAMINE [Concomitant]
     Active Substance: KETAMINE
     Indication: Pain
     Dosage: 491 MILLIGRAM, DAY 4 (INTRAVENOUS INFUSION)
     Route: 042
  66. KETAMINE [Concomitant]
     Active Substance: KETAMINE
     Dosage: 491 MILLIGRAM, DAY 10 (INTRAVENOUS INFUSION)
     Route: 042
  67. KETAMINE [Concomitant]
     Active Substance: KETAMINE
     Dosage: 818 MILLIGRAM, DAY 12 (INTRAVENOUS INFUSION)
     Route: 042
  68. KETAMINE [Concomitant]
     Active Substance: KETAMINE
     Dosage: 818 MILLIGRAM, DAY 16 (INTRAVENOUS INFUSION)
     Route: 042
  69. KETAMINE [Concomitant]
     Active Substance: KETAMINE
     Dosage: 409 MILLIGRAM, DAY 20 (INTRAVENOUS INFUSION)
     Route: 042
  70. ZINECARD [Concomitant]
     Active Substance: DEXRAZOXANE HYDROCHLORIDE
     Indication: Anticoagulant therapy
     Dosage: UNK
     Route: 065

REACTIONS (2)
  - Drug ineffective [Unknown]
  - Lethargy [Unknown]
